FAERS Safety Report 9906537 (Version 1)
Quarter: 2014Q1

REPORT INFORMATION
  Report Type: Spontaneous
  Country: US (occurrence: US)
  Receive Date: 20140218
  Receipt Date: 20140218
  Transmission Date: 20141002
  Serious: Yes (Hospitalization, Other)
  Sender: FDA-Public Use
  Company Number: US-UCBSA-112333

PATIENT
  Age: 48 Year
  Sex: Female

DRUGS (2)
  1. NEUPRO [Suspect]
     Indication: PARKINSON^S DISEASE
     Dosage: DOSE : 4 MG
  2. LEVODOPA/CARBIDOPA [Concomitant]

REACTIONS (4)
  - Urinary retention [Unknown]
  - Convulsion [Unknown]
  - Panic attack [Unknown]
  - Anxiety [Unknown]
